FAERS Safety Report 25859104 (Version 1)
Quarter: 2025Q3

REPORT INFORMATION
  Report Type: Spontaneous
  Country: LB (occurrence: LB)
  Receive Date: 20250929
  Receipt Date: 20250929
  Transmission Date: 20251020
  Serious: Yes (Hospitalization)
  Sender: MYLAN
  Company Number: LB-MYLANLABS-2025M1082730

PATIENT
  Age: 24 Year
  Sex: Female

DRUGS (20)
  1. VENLAFAXINE [Suspect]
     Active Substance: VENLAFAXINE HYDROCHLORIDE
     Indication: Major depression
  2. VENLAFAXINE [Suspect]
     Active Substance: VENLAFAXINE HYDROCHLORIDE
     Route: 065
  3. VENLAFAXINE [Suspect]
     Active Substance: VENLAFAXINE HYDROCHLORIDE
     Route: 065
  4. VENLAFAXINE [Suspect]
     Active Substance: VENLAFAXINE HYDROCHLORIDE
  5. LITHIUM [Suspect]
     Active Substance: LITHIUM
     Indication: Major depression
  6. LITHIUM [Suspect]
     Active Substance: LITHIUM
     Indication: Suicide attempt
  7. LITHIUM [Suspect]
     Active Substance: LITHIUM
     Route: 065
  8. LITHIUM [Suspect]
     Active Substance: LITHIUM
     Route: 065
  9. LITHIUM [Suspect]
     Active Substance: LITHIUM
  10. LITHIUM [Suspect]
     Active Substance: LITHIUM
  11. LITHIUM [Suspect]
     Active Substance: LITHIUM
     Route: 065
  12. LITHIUM [Suspect]
     Active Substance: LITHIUM
     Route: 065
  13. LAMOTRIGINE [Suspect]
     Active Substance: LAMOTRIGINE
     Indication: Major depression
  14. LAMOTRIGINE [Suspect]
     Active Substance: LAMOTRIGINE
     Route: 065
  15. LAMOTRIGINE [Suspect]
     Active Substance: LAMOTRIGINE
     Route: 065
  16. LAMOTRIGINE [Suspect]
     Active Substance: LAMOTRIGINE
  17. QUETIAPINE [Concomitant]
     Active Substance: QUETIAPINE
     Indication: Suicide attempt
  18. QUETIAPINE [Concomitant]
     Active Substance: QUETIAPINE
     Route: 065
  19. QUETIAPINE [Concomitant]
     Active Substance: QUETIAPINE
     Route: 065
  20. QUETIAPINE [Concomitant]
     Active Substance: QUETIAPINE

REACTIONS (1)
  - Drug ineffective [Unknown]
